FAERS Safety Report 5827953-9 (Version None)
Quarter: 2008Q3

REPORT INFORMATION
  Report Type: 
  Country: None (occurrence: None)
  Receive Date: 20080728
  Receipt Date: 20080721
  Transmission Date: 20090109
  Serious: Yes (Death, Life-Threatening, Hospitalization)
  Sender: FDA-Public Use
  Company Number: 163-20785-08040048

PATIENT
  Age: 84 Year
  Sex: Female

DRUGS (10)
  1. THALOMID [Suspect]
     Indication: MULTIPLE MYELOMA
     Dosage: 50 MG, DAILY, ORAL
     Route: 048
     Dates: start: 20071207, end: 20071210
  2. DECADRON [Suspect]
     Indication: MULTIPLE MYELOMA
     Dosage: 4 MG, ORAL
     Route: 048
     Dates: start: 20071207, end: 20071210
  3. COUMADIN [Concomitant]
  4. DIOVAN [Concomitant]
  5. CALCIUM + VITAMIN D (CALCIUM WITH VITAMIN D) [Concomitant]
  6. NORCO [Concomitant]
  7. FOSAMAX [Concomitant]
  8. PENTASA [Concomitant]
  9. CARDIZEM [Concomitant]
  10. ZETIA [Concomitant]

REACTIONS (3)
  - INTERNATIONAL NORMALISED RATIO INCREASED [None]
  - NECK PAIN [None]
  - SUBARACHNOID HAEMORRHAGE [None]
